FAERS Safety Report 8538195-0 (Version None)
Quarter: 2012Q3

REPORT INFORMATION
  Report Type: 
  Country: None (occurrence: None)
  Receive Date: 20120726
  Receipt Date: 20120720
  Transmission Date: 20120928
  Serious: Yes (Hospitalization, Other)
  Sender: FDA-Public Use
  Company Number: US-MSD-1203USA01874

PATIENT

DRUGS (21)
  1. ALLEGRA [Concomitant]
     Dosage: 60 MG, BID
  2. LYRICA [Suspect]
     Dosage: 75 MG, UNK
  3. COUMADIN [Concomitant]
     Dosage: 2 MG, QD
  4. ZETIA [Suspect]
     Dosage: 10 MG, QD
     Route: 048
  5. ANUSOL (BISMUTH SUBGALLATE (+) PRAMOXINE HYDROCHLORIDE) [Concomitant]
     Dosage: UNK UNK, PRN
  6. CALCIUM (UNSPECIFIED) [Concomitant]
     Dosage: 1200 MG, QD
  7. BYSTOLIC [Concomitant]
     Dosage: 2.5 MG, QD
  8. ZOLOFT [Suspect]
  9. CALAN [Suspect]
     Dosage: 120 MG, QD
  10. MK-9278 [Concomitant]
     Dosage: UNK UNK, QD
  11. VITAMIN B COMPLEX CAP [Concomitant]
     Dosage: UNK UNK, QD
  12. PLAQUENIL [Concomitant]
     Dosage: 200 MG, BID
  13. MACROBID (CLARITHROMYCIN) [Concomitant]
     Dosage: 100 MG, QD
  14. SYNCOL [Concomitant]
     Indication: MUSCLE SPASMS
     Dosage: 0.125 MG, PRN
  15. AVAPRO [Concomitant]
     Dosage: 75 MG, QD
  16. XANAX [Suspect]
  17. CHOLECALCIFEROL [Concomitant]
     Dosage: 1000 IU, QD
  18. ASCORBIC ACID [Concomitant]
     Dosage: 500 MG, QD
  19. LYRICA [Suspect]
     Dosage: 50 MG, UNK
  20. MAXZIDE [Concomitant]
     Dosage: 25 MG, QD
  21. MECLIZINE HCL [Suspect]
     Dosage: 25 MG, PRN

REACTIONS (6)
  - DRUG HYPERSENSITIVITY [None]
  - CHEST PAIN [None]
  - NEPHROLITHIASIS [None]
  - URTICARIA CHRONIC [None]
  - HYPERSENSITIVITY [None]
  - CARDIAC DISORDER [None]
